FAERS Safety Report 12919936 (Version 2)
Quarter: 2016Q4

REPORT INFORMATION
  Report Type: Spontaneous
  Country: DE (occurrence: DE)
  Receive Date: 20161107
  Receipt Date: 20161204
  Transmission Date: 20170207
  Serious: Yes (Life-Threatening, Hospitalization, Other)
  Sender: FDA-Public Use
  Company Number: DE-GLAXOSMITHKLINE-DE2016GSK163785

PATIENT
  Age: 61 Year
  Sex: Male
  Weight: 84 kg

DRUGS (15)
  1. SULTANOL [Concomitant]
     Active Substance: ALBUTEROL SULFATE
     Indication: ASTHMA
     Dosage: 2 PUFF(S), PRN
  2. NUCALA [Suspect]
     Active Substance: MEPOLIZUMAB
     Indication: ASTHMA
     Dosage: UNK
     Dates: start: 2010
  3. FORMATRIS [Concomitant]
     Active Substance: FORMOTEROL FUMARATE
     Indication: ASTHMA
     Dosage: 12 MG, TID
  4. PULMICORT TURBUHALER [Concomitant]
     Active Substance: BUDESONIDE
     Indication: ASTHMA
     Dosage: UNK
  5. VIGANTOLETTEN [Concomitant]
     Active Substance: CHOLECALCIFEROL
  6. SOLOSIN [Concomitant]
     Dosage: UNK
  7. URBASON [Concomitant]
     Active Substance: METHYLPREDNISOLONE
     Indication: ASTHMA
     Dosage: UNK
  8. CALCIUM [Concomitant]
     Active Substance: CALCIUM
  9. XARELTO [Concomitant]
     Active Substance: RIVAROXABAN
  10. INERGY [Concomitant]
  11. PANTOPRAZOL [Concomitant]
     Active Substance: PANTOPRAZOLE SODIUM
  12. SPIRIVA RESPIMAT [Concomitant]
     Active Substance: TIOTROPIUM BROMIDE
  13. AQUAPHOR [Concomitant]
     Active Substance: PETROLATUM
  14. VALSARTAN. [Concomitant]
     Active Substance: VALSARTAN
  15. BRICANYL [Concomitant]
     Active Substance: TERBUTALINE SULFATE
     Dosage: UNK

REACTIONS (3)
  - Thrombosis [Recovered/Resolved]
  - Pulmonary embolism [Recovered/Resolved]
  - Factor V Leiden mutation [Unknown]

NARRATIVE: CASE EVENT DATE: 201607
